FAERS Safety Report 9904113 (Version 1)
Quarter: 2014Q1

REPORT INFORMATION
  Report Type: Spontaneous
  Country: US (occurrence: US)
  Receive Date: 20140218
  Receipt Date: 20140218
  Transmission Date: 20141002
  Serious: No
  Sender: FDA-Public Use
  Company Number: US-BIOGENIDEC-2014BI013247

PATIENT
  Sex: Female

DRUGS (17)
  1. TECFIDERA [Suspect]
     Indication: MULTIPLE SCLEROSIS
     Route: 048
     Dates: start: 201401, end: 201401
  2. TECFIDERA [Suspect]
     Indication: MULTIPLE SCLEROSIS
     Route: 048
     Dates: start: 201401, end: 201401
  3. COREG [Concomitant]
  4. XANAX [Concomitant]
  5. PLAQUENIL [Concomitant]
  6. LASIX [Concomitant]
  7. PREMARIN [Concomitant]
  8. ZOLOFT [Concomitant]
  9. PREDNISONE [Concomitant]
  10. NEURONTIN [Concomitant]
  11. TEGRETOL XR [Concomitant]
  12. LISINOPRIL [Concomitant]
  13. HYDROCODON-ACETAMINOPH [Concomitant]
  14. CALCIUM + VITAMIN D [Concomitant]
  15. EQL VITAMIN C [Concomitant]
  16. BABY ASPIRIN [Concomitant]
  17. GNP VITAMIN D [Concomitant]

REACTIONS (1)
  - Colitis [Unknown]
